FAERS Safety Report 5877181-6 (Version None)
Quarter: 2008Q3

REPORT INFORMATION
  Report Type: 
  Country: None (occurrence: None)
  Receive Date: 20080908
  Receipt Date: 20080908
  Transmission Date: 20090109
  Serious: Yes (Disabling)
  Sender: FDA-Public Use
  Company Number: None

PATIENT
  Age: 73 Year
  Sex: Male
  Weight: 81.6475 kg

DRUGS (1)
  1. CIPROFLOXACIN [Suspect]
     Indication: INFECTION PROPHYLAXIS
     Dates: start: 20080815, end: 20080822

REACTIONS (3)
  - PHOTOSENSITIVITY REACTION [None]
  - SKIN EXFOLIATION [None]
  - SUNBURN [None]
